FAERS Safety Report 18181156 (Version 1)
Quarter: 2020Q3

REPORT INFORMATION
  Report Type: Spontaneous
  Country: DE (occurrence: DE)
  Receive Date: 20200821
  Receipt Date: 20200821
  Transmission Date: 20201103
  Serious: Yes (Life-Threatening, Hospitalization)
  Sender: FDA-Public Use
  Company Number: DE-TEVA-2020-DE-1815690

PATIENT
  Age: 48 Year
  Sex: Female

DRUGS (3)
  1. FLUOXETIN [Suspect]
     Active Substance: FLUOXETINE HYDROCHLORIDE
     Dosage: 20 MG, 2?1?0?0
  2. TRIMIPRAMINE [Suspect]
     Active Substance: TRIMIPRAMINE
     Dosage: 200 MILLIGRAM DAILY;  0?0?1?0
  3. VALSARTAN. [Concomitant]
     Active Substance: VALSARTAN
     Dosage: .5 MILLIGRAM DAILY; 80 MG, 0.5?0?0?0

REACTIONS (7)
  - Depressed level of consciousness [Unknown]
  - Electrocardiogram QT prolonged [Unknown]
  - Depressed mood [Unknown]
  - Fall [Unknown]
  - Generalised tonic-clonic seizure [Unknown]
  - Loss of consciousness [Unknown]
  - Confusional state [Unknown]
